FAERS Safety Report 16473064 (Version 3)
Quarter: 2019Q3

REPORT INFORMATION
  Report Type: Report from Study
  Country: None (occurrence: IL)
  Receive Date: 20190625
  Receipt Date: 20190711
  Transmission Date: 20191004
  Serious: Yes (Hospitalization, Other)
  Sender: FDA-Public Use
  Company Number: IL-ABBVIE-19K-082-2830696-00

PATIENT
  Age: 61 Year
  Sex: Female

DRUGS (1)
  1. HUMIRA [Suspect]
     Active Substance: ADALIMUMAB
     Indication: CROHN^S DISEASE
     Route: 058
     Dates: start: 20180401

REACTIONS (17)
  - Crush injury [Unknown]
  - Injection site extravasation [Unknown]
  - Malaise [Unknown]
  - Feeling abnormal [Unknown]
  - Energy increased [Recovered/Resolved]
  - Injection site erythema [Unknown]
  - Limb crushing injury [Unknown]
  - Ligament injury [Unknown]
  - Fatigue [Recovered/Resolved]
  - Haemorrhoids [Unknown]
  - Haematochezia [Unknown]
  - Gait disturbance [Unknown]
  - Asthenia [Not Recovered/Not Resolved]
  - Frequent bowel movements [Recovered/Resolved]
  - Drug ineffective [Unknown]
  - Nausea [Not Recovered/Not Resolved]
  - Device issue [Unknown]

NARRATIVE: CASE EVENT DATE: 2019
